FAERS Safety Report 19804894 (Version 2)
Quarter: 2021Q3

REPORT INFORMATION
  Report Type: Spontaneous
  Country: US (occurrence: US)
  Receive Date: 20210908
  Receipt Date: 20210909
  Transmission Date: 20211014
  Serious: Yes (Other)
  Sender: FDA-Public Use
  Company Number: US-PFIZER INC-2021350914

PATIENT
  Sex: Female

DRUGS (1)
  1. SERTRALINE HCL [Suspect]
     Active Substance: SERTRALINE HYDROCHLORIDE
     Dosage: 200 MG

REACTIONS (8)
  - Weight increased [Unknown]
  - Abdominal discomfort [Unknown]
  - Anxiety [Unknown]
  - Libido decreased [Unknown]
  - Depression [Unknown]
  - Dyschezia [Unknown]
  - Drug ineffective [Unknown]
  - Sleep apnoea syndrome [Unknown]
